FAERS Safety Report 7864391-1 (Version None)
Quarter: 2011Q4

REPORT INFORMATION
  Report Type: 
  Country: None (occurrence: None)
  Receive Date: 20111028
  Receipt Date: 20111017
  Transmission Date: 20120403
  Serious: Yes (Other)
  Sender: FDA-Public Use
  Company Number: PHFR2011GB05065

PATIENT
  Age: 18 Year
  Sex: Female

DRUGS (2)
  1. TEGRETOL [Suspect]
     Indication: EPILEPSY
     Dosage: 200 MG AT AM + 300 MG AT PM
  2. TEGRETOL [Suspect]
     Dosage: UNK UKN, UNK

REACTIONS (1)
  - RETT'S DISORDER [None]
